FAERS Safety Report 18879135 (Version 11)
Quarter: 2021Q3

REPORT INFORMATION
  Report Type: Report from Study
  Country: US (occurrence: US)
  Receive Date: 20210211
  Receipt Date: 20210728
  Transmission Date: 20211014
  Serious: Yes (Other)
  Sender: FDA-Public Use
  Company Number: NVSC2021US022341

PATIENT
  Age: 2 Year
  Sex: Male
  Weight: 15.3 kg

DRUGS (19)
  1. DABRAFENIB [Suspect]
     Active Substance: DABRAFENIB
     Dosage: 5.25 MG/KG/DAY, BID
     Route: 048
  2. DABRAFENIB [Suspect]
     Active Substance: DABRAFENIB
     Dosage: 35 MG, BID (5.25 MG/KG/DAY DIVIDED BID)
     Route: 048
     Dates: end: 20210520
  3. DEXAMETHASONE. [Concomitant]
     Active Substance: DEXAMETHASONE
     Indication: PRODUCT USED FOR UNKNOWN INDICATION
     Dosage: 0.5 MG, QD (QAM)
     Route: 065
  4. DABRAFENIB [Suspect]
     Active Substance: DABRAFENIB
     Indication: ASTROCYTOMA
     Dosage: 30 MG, BID
     Route: 048
     Dates: start: 20210120, end: 20210128
  5. DABRAFENIB [Suspect]
     Active Substance: DABRAFENIB
     Dosage: 35 MG, BID
     Route: 048
     Dates: start: 20210401
  6. MEKINIST [Suspect]
     Active Substance: TRAMETINIB DIMETHYL SULFOXIDE
     Dosage: 0.5 MG, QD
     Route: 048
     Dates: start: 20210708, end: 20210715
  7. BACLOFEN. [Concomitant]
     Active Substance: BACLOFEN
     Dosage: 5 MG, TID
     Route: 065
  8. GRANISETRON [Concomitant]
     Active Substance: GRANISETRON
     Indication: PRODUCT USED FOR UNKNOWN INDICATION
     Dosage: 0.5 MG, BID
     Route: 065
  9. BACLOFEN. [Concomitant]
     Active Substance: BACLOFEN
     Indication: PRODUCT USED FOR UNKNOWN INDICATION
     Dosage: 2.5 MG, BID
     Route: 065
  10. BACLOFEN. [Concomitant]
     Active Substance: BACLOFEN
     Dosage: 5 MG, BID
     Route: 065
  11. DABRAFENIB [Suspect]
     Active Substance: DABRAFENIB
     Dosage: 30 MG, BID
     Route: 048
     Dates: start: 20210527
  12. HYDROCORTISONE. [Concomitant]
     Active Substance: HYDROCORTISONE
     Indication: PRODUCT USED FOR UNKNOWN INDICATION
     Dosage: 2.5 MG, BID
     Route: 065
  13. DABRAFENIB [Suspect]
     Active Substance: DABRAFENIB
     Dosage: 30 MG, BID
     Route: 048
     Dates: start: 20210609, end: 20210715
  14. SODIUM CITRATE. [Concomitant]
     Active Substance: SODIUM CITRATE
     Indication: PRODUCT USED FOR UNKNOWN INDICATION
     Dosage: UNK
     Route: 065
  15. HYDROCORTISONE. [Concomitant]
     Active Substance: HYDROCORTISONE
     Dosage: 2.6 MG, BID
     Route: 065
  16. DABRAFENIB [Suspect]
     Active Substance: DABRAFENIB
     Dosage: 25 MG, BID
     Route: 048
     Dates: start: 20210209
  17. DEXAMETHASONE. [Concomitant]
     Active Substance: DEXAMETHASONE
     Dosage: 3 MG, TID
     Route: 065
  18. DABRAFENIB [Suspect]
     Active Substance: DABRAFENIB
     Dosage: 4.5 MG/KG/DAY, BID
     Route: 048
  19. MEKINIST [Suspect]
     Active Substance: TRAMETINIB DIMETHYL SULFOXIDE
     Indication: ASTROCYTOMA
     Dosage: 0.375 MG
     Route: 048
     Dates: start: 20210609

REACTIONS (8)
  - Cough [Recovered/Resolved]
  - Astrocytoma [Not Recovered/Not Resolved]
  - Neutropenia [Recovered/Resolved]
  - Leukopenia [Unknown]
  - Upper respiratory tract infection [Recovered/Resolved]
  - Neutropenia [Recovered/Resolved]
  - Neutropenia [Not Recovered/Not Resolved]
  - Malignant neoplasm progression [Not Recovered/Not Resolved]

NARRATIVE: CASE EVENT DATE: 20210128
